FAERS Safety Report 4426713-3 (Version None)
Quarter: 2004Q3

REPORT INFORMATION
  Report Type: 
  Country: None (occurrence: None)
  Receive Date: 20040812
  Receipt Date: 20040812
  Transmission Date: 20050211
  Serious: Yes (Death)
  Sender: FDA-Public Use
  Company Number: None

PATIENT
  Age: 48 Year
  Sex: Male
  Weight: 107.5025 kg

DRUGS (1)
  1. GEMZAR [Suspect]
     Indication: PANCREATIC CARCINOMA METASTATIC
     Dosage: 1500MG/M2 3WKS, 1WK INTRAVENOUS
     Route: 042
     Dates: start: 20031009, end: 20040528

REACTIONS (3)
  - MALIGNANT NEOPLASM PROGRESSION [None]
  - PAIN EXACERBATED [None]
  - PANCREATIC CARCINOMA METASTATIC [None]
